FAERS Safety Report 23578648 (Version 6)
Quarter: 2024Q2

REPORT INFORMATION
  Report Type: Report from Study
  Country: US (occurrence: US)
  Receive Date: 20240229
  Receipt Date: 20240620
  Transmission Date: 20240715
  Serious: Yes (Other)
  Sender: FDA-Public Use
  Company Number: US-UCBSA-2024004765

PATIENT
  Sex: Male
  Weight: 36 kg

DRUGS (20)
  1. FINTEPLA [Suspect]
     Active Substance: FENFLURAMINE
     Indication: Epilepsy
     Dosage: 5.7 MILLILITER, 2X/DAY (BID) 345 ML
     Route: 048
     Dates: start: 20230825
  2. FINTEPLA [Suspect]
     Active Substance: FENFLURAMINE
     Indication: Off label use
     Dosage: 5.7 MILLILITER, 2X/DAY (BID) 345 ML
     Route: 048
  3. FINTEPLA [Suspect]
     Active Substance: FENFLURAMINE
     Indication: Severe myoclonic epilepsy of infancy
     Dosage: 4 MILLILITER, 2X/DAY (BID)
     Route: 048
  4. FINTEPLA [Suspect]
     Active Substance: FENFLURAMINE
     Dosage: 4 MILLILITER, 2X/DAY (BID)
  5. FINTEPLA [Suspect]
     Active Substance: FENFLURAMINE
     Dosage: 2 MILLILITER, 2X/DAY (BID)
  6. FELBATOL [Concomitant]
     Active Substance: FELBAMATE
     Indication: Product used for unknown indication
     Dosage: 800 MG IN AM, 400 MG IN AFTERNOON, 600 MG AT BEDTIME (45.0 MG/KG/DAY)
     Route: 048
     Dates: start: 20230401
  7. KLONOPIN [Concomitant]
     Active Substance: CLONAZEPAM
     Indication: Seizure
     Dosage: (10 TABLETS) ADMINISTER BUCCALLY IN THE CASE THAT HE IS UNABLE TO TAKE ONFI. CAN TAKE Q12 HOURS IF N
     Route: 002
     Dates: start: 20230105
  8. VALTOCO [Concomitant]
     Active Substance: DIAZEPAM
     Indication: Seizure
     Dosage: 1 SPRAY INTO THE NOSE AS NEEDED {FOR CONVULSIVE SEIZURES LASTING LONGER THAN 5 MINUTES.). ADMINISTER
     Route: 045
     Dates: start: 20221006
  9. VALTOCO [Concomitant]
     Active Substance: DIAZEPAM
     Dosage: 10 MILLIGRAM
     Route: 045
  10. EPINEPHRINE [Concomitant]
     Active Substance: EPINEPHRINE
     Indication: Anaphylactic reaction
     Dosage: 120 TABLETS, AS NEEDED
     Dates: start: 20230203
  11. PROBIOTICS NOS [Concomitant]
     Active Substance: PROBIOTICS NOS
     Indication: Gastrointestinal disorder
     Dosage: TAKE BY MOUTH ONCE EVERY EVENING. 1 CHEWY TAB DAILY
     Route: 048
     Dates: start: 20230410
  12. MCT OIL [MEDIUM-CHAIN TRIGLYCERIDES] [Concomitant]
     Indication: Seizure
     Dosage: TOTAL DOSE PER DAY 45 ML
     Route: 048
  13. ZOFRAN [Concomitant]
     Active Substance: ONDANSETRON HYDROCHLORIDE
     Indication: Vomiting
     Dosage: 4 MILLIGRAM, 2X/DAY (BID)
     Route: 048
     Dates: start: 20240105
  14. MINERALS\VITAMINS [Concomitant]
     Active Substance: MINERALS\VITAMINS
     Indication: Product used for unknown indication
     Dosage: 1 TABLET BY MOUTH ONCE EVERY EVENING. FLINTSTONE MULTI-VITAMIN DAILT
     Route: 048
  15. ONFI [Concomitant]
     Active Substance: CLOBAZAM
     Indication: Seizure
     Dosage: UNK
  16. ONFI [Concomitant]
     Active Substance: CLOBAZAM
     Dosage: 2.5 MILLIGRAM
     Dates: start: 20231031
  17. MAGNESIUM [Concomitant]
     Active Substance: MAGNESIUM
     Indication: Product used for unknown indication
     Dosage: UNK
  18. CARAFATE [Concomitant]
     Active Substance: SUCRALFATE
     Indication: Product used for unknown indication
     Dosage: UNK
  19. HYDROCORTISONE [Concomitant]
     Active Substance: HYDROCORTISONE\HYDROCORTISONE ACETATE
     Indication: Product used for unknown indication
     Dosage: 1-2 TIMES A DAY FOR 1-2 WEEKS
     Dates: start: 20240118
  20. OMEGA-3 FATTY ACIDS [Concomitant]
     Active Substance: OMEGA-3 FATTY ACIDS
     Indication: Lipids increased
     Dosage: 1000 MILLIGRAM, TAKE ONE CAPSULE BY MOUTH IN AM
     Route: 048
     Dates: start: 20240228

REACTIONS (18)
  - Seizure [Recovered/Resolved]
  - Obstructive sleep apnoea syndrome [Unknown]
  - Breath odour [Not Recovered/Not Resolved]
  - Abdominal pain upper [Recovered/Resolved]
  - Vomiting [Recovered/Resolved]
  - Adenotonsillectomy [Unknown]
  - Somnolence [Not Recovered/Not Resolved]
  - Diarrhoea [Recovering/Resolving]
  - Nausea [Not Recovered/Not Resolved]
  - Retching [Recovered/Resolved]
  - Weight increased [Unknown]
  - Blood ketone body decreased [Unknown]
  - Gastrointestinal disorder [Unknown]
  - Oesophagitis [Recovered/Resolved]
  - Abdominal discomfort [Not Recovered/Not Resolved]
  - Off label use [Unknown]
  - Drug ineffective [Unknown]
  - Intentional dose omission [Unknown]

NARRATIVE: CASE EVENT DATE: 20230101
